FAERS Safety Report 17542192 (Version 1)
Quarter: 2020Q1

REPORT INFORMATION
  Report Type: Spontaneous
  Country: FR (occurrence: FR)
  Receive Date: 20200313
  Receipt Date: 20200313
  Transmission Date: 20200409
  Serious: Yes (Hospitalization)
  Sender: FDA-Public Use
  Company Number: FR-ELI_LILLY_AND_COMPANY-FR202003002434

PATIENT
  Age: 24 Year
  Sex: Male
  Weight: 63 kg

DRUGS (5)
  1. DEPAKOTE [Suspect]
     Active Substance: DIVALPROEX SODIUM
     Indication: PRODUCT USED FOR UNKNOWN INDICATION
     Dosage: 1500 MG, DAILY
     Route: 048
  2. DIAZEPAM. [Suspect]
     Active Substance: DIAZEPAM
     Indication: PRODUCT USED FOR UNKNOWN INDICATION
     Dosage: 10 MG, DAILY
     Route: 048
     Dates: end: 20191120
  3. LEPTICUR [Suspect]
     Active Substance: TROPATEPINE HYDROCHLORIDE
     Indication: PRODUCT USED FOR UNKNOWN INDICATION
     Dosage: 10 MG, DAILY
     Route: 048
     Dates: end: 20191120
  4. AMISULPRIDE [Suspect]
     Active Substance: AMISULPRIDE
     Indication: CHILDHOOD PSYCHOSIS
     Dosage: 50 MG, DAILY
     Route: 048
     Dates: end: 20191120
  5. OLANZAPINE. [Suspect]
     Active Substance: OLANZAPINE
     Indication: CHILDHOOD PSYCHOSIS
     Dosage: 10 MG, DAILY
     Route: 048
     Dates: end: 20191120

REACTIONS (1)
  - Psychomotor skills impaired [Recovered/Resolved]

NARRATIVE: CASE EVENT DATE: 20191119
